FAERS Safety Report 5113924-7 (Version None)
Quarter: 2006Q3

REPORT INFORMATION
  Report Type: 
  Country: None (occurrence: None)
  Receive Date: 20060922
  Receipt Date: 20060922
  Transmission Date: 20061208
  Serious: Yes (Disabling, Other)
  Sender: FDA-Public Use
  Company Number: None

PATIENT
  Age: 54 Year
  Sex: Male
  Weight: 61.2356 kg

DRUGS (1)
  1. NIFEDIPINE XL 60 MG KREMERS UR [Suspect]
     Indication: HYPERTENSION
     Dosage: 60 MG 1X/DAY PO
     Route: 048
     Dates: start: 20060723, end: 20060914

REACTIONS (5)
  - ABDOMINAL PAIN LOWER [None]
  - CONSTIPATION [None]
  - MUSCLE STRAIN [None]
  - PHARMACEUTICAL PRODUCT COMPLAINT [None]
  - TESTICULAR PAIN [None]
